FAERS Safety Report 12267213 (Version 1)
Quarter: 2016Q2

REPORT INFORMATION
  Report Type: Spontaneous
  Country: US (occurrence: US)
  Receive Date: 20160414
  Receipt Date: 20160414
  Transmission Date: 20160815
  Serious: Yes (Other)
  Sender: FDA-Public Use
  Company Number: US-BIOGEN-2016BI00221474

PATIENT

DRUGS (1)
  1. AVONEX [Suspect]
     Active Substance: INTERFERON BETA-1A
     Indication: MULTIPLE SCLEROSIS
     Route: 065
     Dates: start: 201206

REACTIONS (6)
  - Multiple allergies [Unknown]
  - Tooth infection [Unknown]
  - General symptom [Unknown]
  - Conjunctivitis [Unknown]
  - Abdominal pain lower [Unknown]
  - Hypersensitivity [Unknown]
